FAERS Safety Report 17139290 (Version 1)
Quarter: 2019Q4

REPORT INFORMATION
  Report Type: Spontaneous
  Country: US (occurrence: US)
  Receive Date: 20191119
  Receipt Date: 20191119
  Transmission Date: 20200122
  Serious: Yes (Hospitalization)
  Sender: FDA-Public Use
  Company Number: None

PATIENT
  Age: 52 Year
  Sex: Male
  Weight: 130 kg

DRUGS (1)
  1. LISINIPRIL [Suspect]
     Active Substance: LISINOPRIL
     Indication: HYPERTENSION
     Route: 048
     Dates: start: 20090801, end: 20190806

REACTIONS (2)
  - Angioedema [None]
  - Upper respiratory tract infection [None]

NARRATIVE: CASE EVENT DATE: 20190806
